FAERS Safety Report 4339746-2 (Version None)
Quarter: 2004Q2

REPORT INFORMATION
  Report Type: 
  Country: None (occurrence: None)
  Receive Date: 20040416
  Receipt Date: 20040407
  Transmission Date: 20050107
  Serious: Yes (Death)
  Sender: FDA-Public Use
  Company Number: 200411457FR

PATIENT
  Age: 57 Year
  Sex: Male

DRUGS (3)
  1. DOCETAXEL [Suspect]
     Indication: CARCINOMA
     Route: 042
     Dates: start: 20040303, end: 20040317
  2. RADIOTHERAPY [Suspect]
     Indication: CARCINOMA
     Dates: start: 20040303, end: 20040322
  3. CISPLATIN [Suspect]
     Indication: CARCINOMA
     Route: 042
     Dates: start: 20040303, end: 20040317

REACTIONS (1)
  - DEATH [None]
